FAERS Safety Report 20485197 (Version 1)
Quarter: 2022Q1

REPORT INFORMATION
  Report Type: Spontaneous
  Country: US (occurrence: None)
  Receive Date: 20220216
  Receipt Date: 20220216
  Transmission Date: 20220424
  Serious: Yes (Hospitalization)
  Sender: FDA-Public Use
  Company Number: None

PATIENT
  Age: 76 Year
  Sex: Female

DRUGS (18)
  1. ENVARSUS XR [Suspect]
     Active Substance: TACROLIMUS
     Indication: Lung transplant
     Route: 048
     Dates: start: 20210116
  2. ADVAIR DISKU AER [Concomitant]
  3. AZELASTINE SPR [Concomitant]
  4. BACTRIM TAB [Concomitant]
  5. BAYER WOMENS TAB [Concomitant]
  6. CALCIUM TAB [Concomitant]
  7. ENVARSUS XR [Concomitant]
  8. ENVARSUS XR TAB [Concomitant]
  9. ENVARSUS XR [Concomitant]
     Active Substance: TACROLIMUS
  10. FISH OIL [Concomitant]
  11. IPRATROPIUM POW BROMIDE [Concomitant]
  12. LEVOTHYROXIN TAB [Concomitant]
  13. NYSTATIN SUS [Concomitant]
  14. PREDNISONE [Concomitant]
     Active Substance: PREDNISONE
  15. PRENANTAL+DHA MIS WOMENS [Concomitant]
  16. PRIMIDONE TAB [Concomitant]
  17. TOBRAMYCIN [Concomitant]
  18. TOBRAMYCIN [Concomitant]
     Active Substance: TOBRAMYCIN
     Dates: start: 20210116

REACTIONS (1)
  - Thrombosis [None]

NARRATIVE: CASE EVENT DATE: 20220201
